FAERS Safety Report 10072197 (Version 1)
Quarter: 2014Q2

REPORT INFORMATION
  Report Type: Spontaneous
  Country: US (occurrence: None)
  Receive Date: 20140410
  Receipt Date: 20140410
  Transmission Date: 20141212
  Serious: Yes (Other)
  Sender: FDA-Public Use
  Company Number: None

PATIENT
  Age: 30 Year
  Sex: Female
  Weight: 70.31 kg

DRUGS (1)
  1. FLUCONAZOLE [Suspect]
     Indication: FUNGAL INFECTION
     Dosage: 1 PILL ONCE A WEEK TAKEN BY MOUTH
     Route: 048
     Dates: start: 20140212, end: 20140408

REACTIONS (9)
  - Eye irritation [None]
  - Foreign body sensation in eyes [None]
  - Abnormal sensation in eye [None]
  - Eye pain [None]
  - Ocular hyperaemia [None]
  - Lacrimation increased [None]
  - Photophobia [None]
  - Visual impairment [None]
  - Impaired driving ability [None]
